FAERS Safety Report 4586809-2 (Version None)
Quarter: 2005Q1

REPORT INFORMATION
  Report Type: 
  Country: None (occurrence: None)
  Receive Date: 20050218
  Receipt Date: 20050211
  Transmission Date: 20050727
  Serious: Yes (Hospitalization)
  Sender: FDA-Public Use
  Company Number: 200511290GDDC

PATIENT
  Age: 74 Year

DRUGS (8)
  1. NATRILIX - SLOW RELEASE [Suspect]
     Indication: ESSENTIAL HYPERTENSION
     Route: 048
     Dates: start: 20040814, end: 20040820
  2. COVERSYL [Concomitant]
  3. TENORMIN [Concomitant]
     Dates: end: 20040820
  4. TYLENOL (CAPLET) [Concomitant]
     Dates: end: 20040820
  5. SINEMET [Concomitant]
  6. DIABEX [Concomitant]
  7. NEXIUM [Concomitant]
  8. ZOCOR [Concomitant]

REACTIONS (8)
  - ASTHENIA [None]
  - DEHYDRATION [None]
  - DIZZINESS [None]
  - FALL [None]
  - HYPONATRAEMIA [None]
  - LETHARGY [None]
  - URINARY INCONTINENCE [None]
  - VOMITING [None]
